FAERS Safety Report 9401364 (Version 1)
Quarter: 2013Q3

REPORT INFORMATION
  Report Type: Spontaneous
  Country: CN (occurrence: CN)
  Receive Date: 20130715
  Receipt Date: 20130715
  Transmission Date: 20140515
  Serious: Yes (Other)
  Sender: FDA-Public Use
  Company Number: CN-BAXTER-2013BAX026600

PATIENT
  Age: 62 Year
  Sex: Female
  Weight: 63 kg

DRUGS (2)
  1. 20% MANNITOL INJECTION [Suspect]
     Indication: FLUID REPLACEMENT
     Route: 041
     Dates: start: 20120714, end: 20120714
  2. 20% MANNITOL INJECTION [Suspect]
     Indication: INTERVERTEBRAL DISC PROTRUSION

REACTIONS (4)
  - Dizziness [Recovering/Resolving]
  - Chills [Recovering/Resolving]
  - Pruritus generalised [Recovering/Resolving]
  - Erythema [Recovering/Resolving]
